FAERS Safety Report 6623457-4 (Version None)
Quarter: 2010Q1

REPORT INFORMATION
  Report Type: 
  Country: None (occurrence: None)
  Receive Date: 20100310
  Receipt Date: 20100226
  Transmission Date: 20100710
  Serious: Yes (Other)
  Sender: FDA-Public Use
  Company Number: US-WYE-H13815710

PATIENT
  Sex: Female
  Weight: 110.32 kg

DRUGS (6)
  1. EFFEXOR XR [Suspect]
     Indication: DEPRESSION
     Dosage: UNKNOWN DOSE
     Route: 048
     Dates: start: 20100101, end: 20100101
  2. EFFEXOR XR [Suspect]
     Dosage: ^TITRATED UP FOR A FEW WEEKS^
     Route: 048
     Dates: start: 20100101, end: 20100101
  3. EFFEXOR XR [Suspect]
     Route: 048
     Dates: start: 20100101, end: 20100101
  4. EFFEXOR XR [Suspect]
     Route: 048
     Dates: start: 20100101, end: 20100217
  5. DEPAKOTE [Suspect]
     Dates: start: 20100210, end: 20100217
  6. SEROQUEL [Suspect]
     Indication: DEPRESSION
     Dates: start: 20100101, end: 20100217

REACTIONS (2)
  - SELF-INJURIOUS IDEATION [None]
  - SUICIDAL IDEATION [None]
